FAERS Safety Report 6569981-4 (Version None)
Quarter: 2010Q1

REPORT INFORMATION
  Report Type: 
  Country: None (occurrence: None)
  Receive Date: 20100204
  Receipt Date: 20100130
  Transmission Date: 20100710
  Serious: Yes (Hospitalization)
  Sender: FDA-Public Use
  Company Number: JP-ABBOTT-09P-087-0609283-00

PATIENT
  Sex: Female
  Weight: 47 kg

DRUGS (2)
  1. HUMIRA [Suspect]
     Indication: RHEUMATOID ARTHRITIS
     Route: 058
     Dates: start: 20090822, end: 20091031
  2. HUMIRA [Suspect]
     Route: 058
     Dates: start: 20091128

REACTIONS (2)
  - CELLULITIS [None]
  - HYPERGLYCAEMIA [None]
